FAERS Safety Report 8571945-6 (Version None)
Quarter: 2012Q3

REPORT INFORMATION
  Report Type: 
  Country: None (occurrence: None)
  Receive Date: 20120724
  Receipt Date: 20120711
  Transmission Date: 20120928
  Serious: Yes (Hospitalization)
  Sender: FDA-Public Use
  Company Number: MIN-00860

PATIENT
  Age: 80 Year
  Sex: Female

DRUGS (12)
  1. SYNTHROID [Concomitant]
  2. VITAMIN B-12 [Concomitant]
  3. MINOCIN [Suspect]
     Indication: RHEUMATOID ARTHRITIS
     Dosage: CAPSULES ORALLY ON MONDAY, WEDNESDAY, AND FRIDAY
     Route: 048
     Dates: start: 20120601
  4. MINOCIN [Suspect]
     Indication: RHEUMATOID ARTHRITIS
     Dates: start: 20120301
  5. MINOCIN [Suspect]
     Indication: RHEUMATOID ARTHRITIS
     Dates: end: 20050101
  6. UNSPECIFIED WATER PILL [Concomitant]
  7. PREDNISONE TAB [Concomitant]
  8. AMITRIPTYLINE HCL [Concomitant]
  9. VITAMIN D [Concomitant]
  10. POTASSIUM [Concomitant]
  11. CRANBERRY CAPSULES [Concomitant]
  12. IBUPROFEN [Concomitant]

REACTIONS (4)
  - PNEUMONIA [None]
  - DRUG INEFFECTIVE FOR UNAPPROVED INDICATION [None]
  - ARTHRITIS [None]
  - SINUSITIS [None]
